FAERS Safety Report 20552419 (Version 2)
Quarter: 2022Q1

REPORT INFORMATION
  Report Type: Report from Study
  Country: US (occurrence: None)
  Receive Date: 20220304
  Receipt Date: 20220307
  Transmission Date: 20220423
  Serious: Yes (Other)
  Sender: FDA-Public Use
  Company Number: US-Hikma Pharmaceuticals USA Inc.-US-H14001-22-00533

PATIENT

DRUGS (1)
  1. KLOXXADO [Suspect]
     Active Substance: NALOXONE HYDROCHLORIDE
     Indication: Overdose
     Dosage: UNKNOWN
     Route: 045

REACTIONS (6)
  - Withdrawal syndrome [Unknown]
  - Nervousness [Unknown]
  - Crying [Unknown]
  - Foaming at mouth [Unknown]
  - Drooling [Unknown]
  - Confusional state [Unknown]
